FAERS Safety Report 23955372 (Version 4)
Quarter: 2025Q2

REPORT INFORMATION
  Report Type: Report from Study
  Country: US (occurrence: US)
  Receive Date: 20240610
  Receipt Date: 20250624
  Transmission Date: 20250717
  Serious: Yes (Hospitalization, Other)
  Sender: ABBVIE
  Company Number: US-ABBVIE-5787980

PATIENT
  Age: 66 Year
  Sex: Male
  Weight: 58.966 kg

DRUGS (3)
  1. CREON [Suspect]
     Active Substance: PANCRELIPASE AMYLASE\PANCRELIPASE LIPASE\PANCRELIPASE PROTEASE
     Indication: Pancreatic failure
     Route: 048
     Dates: start: 2013
  2. MODAFINIL [Concomitant]
     Active Substance: MODAFINIL
     Indication: Sleep disorder
  3. TAMSULOSIN [Concomitant]
     Active Substance: TAMSULOSIN
     Indication: Prostatic disorder

REACTIONS (12)
  - Abdominal pain [Recovering/Resolving]
  - Throat irritation [Recovered/Resolved]
  - Hepatic enzyme increased [Recovered/Resolved]
  - Medical diet [Recovered/Resolved]
  - Pancreatitis acute [Recovering/Resolving]
  - Hunger [Recovered/Resolved]
  - General symptom [Unknown]
  - Loss of consciousness [Unknown]
  - Memory impairment [Unknown]
  - Volvulus of small bowel [Unknown]
  - Amnesia [Recovering/Resolving]
  - Road traffic accident [Unknown]

NARRATIVE: CASE EVENT DATE: 20240101
